FAERS Safety Report 10214490 (Version 1)
Quarter: 2014Q2

REPORT INFORMATION
  Report Type: Spontaneous
  Country: US (occurrence: None)
  Receive Date: 20140602
  Receipt Date: 20140602
  Transmission Date: 20141212
  Serious: Yes (Hospitalization)
  Sender: FDA-Public Use
  Company Number: None

PATIENT
  Age: 63 Year
  Sex: Male

DRUGS (1)
  1. CHANTIX [Suspect]
     Indication: SMOKING CESSATION THERAPY
     Route: 048
     Dates: start: 20140515, end: 20140527

REACTIONS (7)
  - Hallucination [None]
  - Nightmare [None]
  - Loss of consciousness [None]
  - Paranoia [None]
  - Suicidal ideation [None]
  - Laceration [None]
  - Intentional self-injury [None]
